FAERS Safety Report 5715347-6 (Version None)
Quarter: 2008Q2

REPORT INFORMATION
  Report Type: 
  Country: None (occurrence: None)
  Receive Date: 20080423
  Receipt Date: 20080411
  Transmission Date: 20081010
  Serious: Yes (Other)
  Sender: FDA-Public Use
  Company Number: JP-PFIZER INC-2008032364

PATIENT
  Sex: Female

DRUGS (1)
  1. RELPAX [Suspect]
     Route: 048

REACTIONS (1)
  - TOXIC SKIN ERUPTION [None]
